FAERS Safety Report 9771438 (Version 2)
Quarter: 2013Q4

REPORT INFORMATION
  Report Type: Spontaneous
  Country: FI (occurrence: FI)
  Receive Date: 20131219
  Receipt Date: 20131221
  Transmission Date: 20140711
  Serious: Yes (Other)
  Sender: FDA-Public Use
  Company Number: FI-ROCHE-1322112

PATIENT
  Age: 80 Year
  Sex: Male

DRUGS (4)
  1. XELODA [Suspect]
     Indication: COLORECTAL CANCER
     Route: 065
     Dates: start: 20131126, end: 20131203
  2. AVASTIN [Concomitant]
     Indication: COLORECTAL CANCER
     Route: 065
     Dates: start: 2012
  3. AMLODIPINE [Concomitant]
     Dosage: FREQUENCY: DAYS
     Route: 065
  4. TAMSULOSIN [Concomitant]
     Dosage: FREQUENCY: DAYS
     Route: 065

REACTIONS (1)
  - Atrioventricular block complete [Recovered/Resolved]
